FAERS Safety Report 7545608-X (Version None)
Quarter: 2011Q2

REPORT INFORMATION
  Report Type: 
  Country: None (occurrence: None)
  Receive Date: 20110614
  Receipt Date: 20110606
  Transmission Date: 20111010
  Serious: Yes (Other)
  Sender: FDA-Public Use
  Company Number: US-ASTELLAS-2011US002739

PATIENT
  Age: 27 Year
  Sex: Female

DRUGS (2)
  1. VIBATIV [Suspect]
     Indication: STAPHYLOCOCCAL INFECTION
     Dosage: UNK
     Route: 065
  2. VIBATIV [Suspect]
     Indication: URINARY TRACT INFECTION

REACTIONS (5)
  - BLOOD CREATININE INCREASED [None]
  - ANAPHYLACTIC REACTION [None]
  - DYSPNOEA [None]
  - OFF LABEL USE [None]
  - URTICARIA [None]
